FAERS Safety Report 9291288 (Version 2)
Quarter: 2013Q4

REPORT INFORMATION
  Report Type: Spontaneous
  Country: US (occurrence: US)
  Receive Date: 20130515
  Receipt Date: 20131030
  Transmission Date: 20140711
  Serious: Yes (Hospitalization)
  Sender: FDA-Public Use
  Company Number: US-B.I. PHARMACEUTICALS,INC./RIDGEFIELD-2013-BI-13320BP

PATIENT
  Age: 79 Year
  Sex: Female
  Weight: 98.88 kg

DRUGS (11)
  1. PRADAXA [Suspect]
     Indication: ANTICOAGULANT THERAPY
     Dates: start: 20110802, end: 20110914
  2. PRADAXA [Suspect]
     Indication: ATRIAL FIBRILLATION
  3. ASPIRIN [Suspect]
     Dates: end: 20110914
  4. ZYLOPRIM [Concomitant]
     Dosage: 50 MG
     Route: 048
  5. CORDARONE [Concomitant]
     Dosage: 400 MG
  6. CARTIA XT [Concomitant]
     Dosage: 180 MG
     Route: 048
  7. LANOXIN [Concomitant]
     Dosage: 0.25 MG
     Route: 048
  8. MUCINEX [Concomitant]
     Dosage: 1200 MG
     Route: 048
  9. LIPITOR [Concomitant]
     Dosage: 10 MG
     Route: 048
  10. SPIRIVA [Concomitant]
     Dosage: 18 MCG
     Route: 055
  11. LASIX [Concomitant]
     Dosage: 20 MG
     Route: 048

REACTIONS (2)
  - Upper gastrointestinal haemorrhage [Unknown]
  - Haemorrhagic anaemia [Unknown]
